FAERS Safety Report 19652230 (Version 1)
Quarter: 2021Q3

REPORT INFORMATION
  Report Type: Spontaneous
  Country: FR (occurrence: FR)
  Receive Date: 20210803
  Receipt Date: 20210803
  Transmission Date: 20211014
  Serious: Yes (Other)
  Sender: FDA-Public Use
  Company Number: FR-MYLANLABS-2021M1047412

PATIENT
  Age: 24 Year
  Sex: Female

DRUGS (1)
  1. ZOLMITRIPTAN. [Suspect]
     Active Substance: ZOLMITRIPTAN
     Indication: MIGRAINE
     Dosage: 5 MILLIGRAM, TOTAL
     Route: 048
     Dates: start: 20210118

REACTIONS (4)
  - Hot flush [Recovered/Resolved]
  - Vertigo [Recovered/Resolved]
  - Dysphagia [Recovered/Resolved]
  - Palpitations [Recovered/Resolved]

NARRATIVE: CASE EVENT DATE: 20210118
